FAERS Safety Report 6498829-1 (Version None)
Quarter: 2009Q4

REPORT INFORMATION
  Report Type: 
  Country: None (occurrence: None)
  Receive Date: 20091215
  Receipt Date: 20091130
  Transmission Date: 20100525
  Serious: Yes (Hospitalization, Other)
  Sender: FDA-Public Use
  Company Number: JP-GENENTECH-288545

PATIENT
  Sex: Female

DRUGS (7)
  1. RANIBIZUMAB [Suspect]
     Indication: MACULAR DEGENERATION
     Dosage: 0.05 MG, UNKNOWN
     Route: 031
     Dates: start: 20090731
  2. RANIBIZUMAB [Suspect]
     Dosage: 0.05 ML, UNK
     Route: 031
     Dates: start: 20090911
  3. RANIBIZUMAB [Suspect]
     Dosage: 0.05 ML, UNK
     Route: 031
     Dates: start: 20091023, end: 20091023
  4. LEVOFLOXACIN [Concomitant]
     Indication: DRUG USE FOR UNKNOWN INDICATION
     Dosage: UNK
     Dates: start: 20090801, end: 20090803
  5. DORZOLAMIDE HYDROCHLORIDE [Concomitant]
     Indication: DRUG USE FOR UNKNOWN INDICATION
     Dosage: UNK
     Dates: start: 20090802, end: 20090803
  6. LATANOPROST [Concomitant]
     Indication: DRUG USE FOR UNKNOWN INDICATION
     Dosage: UNK
     Dates: start: 20090801, end: 20090803
  7. DIAMOX SRC [Concomitant]
     Indication: DRUG USE FOR UNKNOWN INDICATION
     Dosage: UNK
     Dates: start: 20090801, end: 20090801

REACTIONS (4)
  - HYPHAEMA [None]
  - INJECTION SITE INJURY [None]
  - INTRAOCULAR PRESSURE INCREASED [None]
  - IRIDODIALYSIS [None]
